FAERS Safety Report 5062712-9 (Version None)
Quarter: 2006Q3

REPORT INFORMATION
  Report Type: 
  Country: None (occurrence: None)
  Receive Date: 20060725
  Receipt Date: 20060725
  Transmission Date: 20061208
  Serious: Yes (Life-Threatening, Hospitalization)
  Sender: FDA-Public Use
  Company Number: None

PATIENT
  Sex: Male

DRUGS (3)
  1. HEPARIN [Suspect]
     Indication: AORTIC STENOSIS
     Dosage: SEE IMAGE
     Route: 042
     Dates: start: 20060703, end: 20060703
  2. HEPARIN [Suspect]
     Indication: CORONARY ARTERY DISEASE
     Dosage: SEE IMAGE
     Route: 042
     Dates: start: 20060703, end: 20060703
  3. HEPARIN [Suspect]
     Indication: MYOPATHY
     Dosage: SEE IMAGE
     Route: 042
     Dates: start: 20060703, end: 20060703

REACTIONS (1)
  - THROMBOCYTOPENIA [None]
